FAERS Safety Report 4903747-3 (Version None)
Quarter: 2006Q1

REPORT INFORMATION
  Report Type: 
  Country: None (occurrence: None)
  Receive Date: 20060203
  Receipt Date: 20060124
  Transmission Date: 20060701
  Serious: Yes (Death)
  Sender: FDA-Public Use
  Company Number: 2006011754

PATIENT
  Age: 70 Year
  Sex: Male

DRUGS (3)
  1. CEFOPERAZONE/SULBACTAM (SULBACTAM, CEFOPERAZONE) [Suspect]
     Indication: ILL-DEFINED DISORDER
     Dosage: 2 GRAM ( 1 GRAM, 2 IN 1D), INTRAVENOUS
     Route: 042
  2. DEXAMETHASONE [Concomitant]
  3. RANITIDINE [Concomitant]

REACTIONS (4)
  - ACTIVATED PARTIAL THROMBOPLASTIN TIME PROLONGED [None]
  - COAGULATION TIME PROLONGED [None]
  - PROTHROMBIN TIME PROLONGED [None]
  - UPPER GASTROINTESTINAL HAEMORRHAGE [None]
